FAERS Safety Report 13930776 (Version 1)
Quarter: 2017Q3

REPORT INFORMATION
  Report Type: Spontaneous
  Country: FR (occurrence: FR)
  Receive Date: 20170901
  Receipt Date: 20170901
  Transmission Date: 20171127
  Serious: Yes (Other)
  Sender: FDA-Public Use
  Company Number: FR-MERCK KGAA-2025483

PATIENT
  Age: 48 Year
  Sex: Female

DRUGS (2)
  1. NOVOTHYROX [Suspect]
     Active Substance: LEVOTHYROXINE SODIUM
     Indication: PRODUCT USED FOR UNKNOWN INDICATION
     Dates: start: 201703
  2. LEVOTHYROX 25 NF [Suspect]
     Active Substance: LEVOTHYROXINE SODIUM
     Dates: start: 201703

REACTIONS (6)
  - Alopecia [Unknown]
  - Vertigo [Unknown]
  - Arrhythmia [Unknown]
  - Blood thyroid stimulating hormone increased [Recovering/Resolving]
  - Chest pain [Unknown]
  - Hot flush [Unknown]

NARRATIVE: CASE EVENT DATE: 2017
